FAERS Safety Report 9190266 (Version 2)
Quarter: 2013Q3

REPORT INFORMATION
  Report Type: Report from Study
  Country: JP (occurrence: JP)
  Receive Date: 20130326
  Receipt Date: 20130708
  Transmission Date: 20140515
  Serious: Yes (Hospitalization)
  Sender: FDA-Public Use
  Company Number: JP-PURDUE-GBR-2013-0013510

PATIENT
  Age: 64 Year
  Sex: Male

DRUGS (12)
  1. OXYCODONE HCL PR TABLET [Suspect]
     Indication: CANCER PAIN
     Dosage: 80 MG, DAILY
     Route: 048
     Dates: start: 20120130, end: 20120205
  2. OXYCODONE HCL PR TABLET [Suspect]
     Dosage: 60 MG, DAILY
     Route: 048
     Dates: start: 20120125, end: 20120129
  3. OXYCODONE HCL PR TABLET [Suspect]
     Dosage: 40 MG, DAILY
     Route: 048
     Dates: start: 20120114, end: 20120124
  4. OXYCODONE HCL IR POWDER 0.5% [Suspect]
     Indication: CANCER PAIN
     Dosage: 20 MG, DAILY
     Route: 048
     Dates: start: 20120325, end: 20120328
  5. OXYCODONE HCL IR POWDER 0.5% [Suspect]
     Dosage: 10 MG, DAILY
     Route: 048
     Dates: start: 20120201, end: 20120324
  6. OXYCODONE HCL IR POWDER 0.5% [Suspect]
     Dosage: 5 MG, DAILY
     Route: 048
     Dates: start: 20120124, end: 20120130
  7. VOLTAREN                           /00372301/ [Concomitant]
     Indication: CANCER PAIN
     Dosage: UNK
     Route: 048
     Dates: start: 20120125, end: 20120325
  8. FENTOS [Concomitant]
     Indication: CANCER PAIN
     Dosage: UNK
     Route: 065
     Dates: start: 20120206, end: 20120331
  9. MAGNESIUM OXIDE [Concomitant]
     Indication: PROPHYLAXIS
     Dosage: UNK
     Route: 048
     Dates: start: 20120201, end: 20120325
  10. SENNOSIDE                          /00571901/ [Concomitant]
     Indication: PROPHYLAXIS
     Dosage: UNK
     Route: 048
     Dates: start: 20120201, end: 20120325
  11. LYRICA [Concomitant]
     Indication: CANCER PAIN
     Dosage: UNK
     Route: 048
     Dates: start: 20120130, end: 20120325
  12. LOXOPROFEN SODIUM [Concomitant]
     Indication: CANCER PAIN
     Dosage: UNK
     Route: 048
     Dates: start: 20111226, end: 20120124

REACTIONS (2)
  - Delirium [Recovering/Resolving]
  - Pneumonia [Recovered/Resolved]
